FAERS Safety Report 7602294-8 (Version None)
Quarter: 2011Q3

REPORT INFORMATION
  Report Type: 
  Country: None (occurrence: None)
  Receive Date: 20110711
  Receipt Date: 20110627
  Transmission Date: 20111222
  Serious: Yes (Other)
  Sender: FDA-Public Use
  Company Number: US-MYLANLABS-2011S1013549

PATIENT
  Age: 20 Year
  Sex: Male

DRUGS (1)
  1. TOPIRAMATE [Suspect]
     Indication: PAIN IN EXTREMITY
     Dosage: INITIAL DOSAGE NOT STATED; INCREASED TO 200 MG/DAY
     Route: 065

REACTIONS (5)
  - NEPHROLITHIASIS [None]
  - RENAL TUBULAR ACIDOSIS [None]
  - HYPOCITRATURIA [None]
  - CALCULUS URETERIC [None]
  - METABOLIC ACIDOSIS [None]
